FAERS Safety Report 4939220-6 (Version None)
Quarter: 2006Q1

REPORT INFORMATION
  Report Type: 
  Country: None (occurrence: None)
  Receive Date: 20060309
  Receipt Date: 20060309
  Transmission Date: 20060701
  Serious: No
  Sender: FDA-Public Use
  Company Number: None

PATIENT
  Age: 65 Year
  Sex: Male
  Weight: 64.8644 kg

DRUGS (2)
  1. LAMICTAL [Suspect]
     Indication: TEMPORAL LOBE EPILEPSY
     Dosage: 2X 100MG  BID  PO
     Route: 048
     Dates: start: 20060104, end: 20060123
  2. LAMICTAL [Suspect]
     Indication: TEMPORAL LOBE EPILEPSY
     Dosage: 2X 25MG  BID  PO
     Route: 048
     Dates: start: 20060104, end: 20060123

REACTIONS (2)
  - NAUSEA [None]
  - VOMITING [None]
